FAERS Safety Report 10409779 (Version 1)
Quarter: 2014Q3

REPORT INFORMATION
  Report Type: Spontaneous
  Country: BR (occurrence: BR)
  Receive Date: 20140826
  Receipt Date: 20140826
  Transmission Date: 20150326
  Serious: Yes (Hospitalization, Other)
  Sender: FDA-Public Use
  Company Number: BR-PFIZER INC-2014234433

PATIENT
  Age: 63 Year
  Sex: Female

DRUGS (6)
  1. BRILINTA [Suspect]
     Active Substance: TICAGRELOR
     Indication: STENT PLACEMENT
     Dosage: 90 MG, UNK
     Route: 048
     Dates: start: 201308, end: 201309
  2. ROSUVASTATIN [Suspect]
     Active Substance: ROSUVASTATIN
     Indication: BLOOD CHOLESTEROL INCREASED
     Dosage: UNK
     Route: 048
     Dates: start: 2005
  3. PURAN [Concomitant]
     Active Substance: LEVOTHYROXINE SODIUM
     Indication: THYROID DISORDER
     Dosage: UNK
     Route: 048
     Dates: start: 2004
  4. ATENOLOL. [Suspect]
     Active Substance: ATENOLOL
     Indication: HYPERTENSION
     Dosage: 50 MG, 2X/DAY
     Route: 048
     Dates: start: 2005
  5. GLIFAGE [Suspect]
     Active Substance: METFORMIN HYDROCHLORIDE
     Indication: DIABETES MELLITUS
     Dosage: UNK
     Route: 048
     Dates: start: 2007
  6. ARADOIS [Concomitant]
     Active Substance: LOSARTAN POTASSIUM
     Indication: HYPERTENSION
     Dosage: UNK
     Route: 048
     Dates: start: 2005

REACTIONS (5)
  - Diabetes mellitus [Recovering/Resolving]
  - Reflux gastritis [Recovering/Resolving]
  - Off label use [Not Recovered/Not Resolved]
  - Device occlusion [Recovered/Resolved]
  - Gastritis [Recovering/Resolving]

NARRATIVE: CASE EVENT DATE: 2005
